FAERS Safety Report 5471606-6 (Version None)
Quarter: 2007Q3

REPORT INFORMATION
  Report Type: 
  Country: None (occurrence: None)
  Receive Date: 20070928
  Receipt Date: 20070205
  Transmission Date: 20080115
  Serious: No
  Sender: FDA-Public Use
  Company Number: US-BRISTOL-MYERS SQUIBB COMPANY-13669700

PATIENT
  Age: 44 Year
  Sex: Female
  Weight: 66 kg

DRUGS (1)
  1. DEFINITY [Suspect]
     Indication: STRESS ECHOCARDIOGRAM
     Route: 042
     Dates: start: 20070205, end: 20070205

REACTIONS (7)
  - BACK PAIN [None]
  - DIZZINESS [None]
  - FLUSHING [None]
  - INFUSION SITE PAIN [None]
  - NAUSEA [None]
  - PAIN IN EXTREMITY [None]
  - TACHYCARDIA [None]
